FAERS Safety Report 19048639 (Version 1)
Quarter: 2021Q1

REPORT INFORMATION
  Report Type: Spontaneous
  Country: CN (occurrence: CN)
  Receive Date: 20210323
  Receipt Date: 20210323
  Transmission Date: 20210420
  Serious: Yes (Life-Threatening, Hospitalization, Other)
  Sender: FDA-Public Use
  Company Number: NVSC2021CN066026

PATIENT
  Age: 67 Year
  Sex: Male
  Weight: 77 kg

DRUGS (2)
  1. EUCREAS [Suspect]
     Active Substance: METFORMIN HYDROCHLORIDE\VILDAGLIPTIN
     Indication: DIABETES MELLITUS
     Dosage: 1 DF, BID,1 DF (AFTER DINNER)
     Route: 048
     Dates: start: 20201106, end: 20210106
  2. LANTUS [Concomitant]
     Active Substance: INSULIN GLARGINE
     Indication: DIABETES MELLITUS
     Dosage: 24/26 IU
     Route: 058
     Dates: start: 20201106, end: 20210106

REACTIONS (27)
  - Balance disorder [Recovering/Resolving]
  - Pallor [Recovering/Resolving]
  - Pain [Recovering/Resolving]
  - Thoracic vertebral fracture [Recovering/Resolving]
  - Back pain [Recovering/Resolving]
  - Peripheral coldness [Recovering/Resolving]
  - Stress ulcer [Recovering/Resolving]
  - Dizziness [Recovering/Resolving]
  - Hyperhidrosis [Recovering/Resolving]
  - Pneumonia [Recovering/Resolving]
  - Chest pain [Recovering/Resolving]
  - Generalised tonic-clonic seizure [Recovering/Resolving]
  - Epilepsy [Recovering/Resolving]
  - Joint ankylosis [Recovering/Resolving]
  - Discomfort [Recovering/Resolving]
  - Photophobia [Recovering/Resolving]
  - Secretion discharge [Recovering/Resolving]
  - Muscle spasms [Recovering/Resolving]
  - Hypoglycaemic coma [Recovering/Resolving]
  - Acute coronary syndrome [Recovering/Resolving]
  - Tachypnoea [Recovering/Resolving]
  - Carotid artery stenosis [Recovering/Resolving]
  - Encephalopathy [Recovering/Resolving]
  - Electrolyte imbalance [Recovering/Resolving]
  - Loss of consciousness [Recovering/Resolving]
  - Vomiting [Recovering/Resolving]
  - Tremor [Recovering/Resolving]

NARRATIVE: CASE EVENT DATE: 20210106
